FAERS Safety Report 9814377 (Version 1)
Quarter: 2014Q1

REPORT INFORMATION
  Report Type: Spontaneous
  Country: US (occurrence: US)
  Receive Date: 20140113
  Receipt Date: 20140113
  Transmission Date: 20141002
  Serious: Yes (Death)
  Sender: FDA-Public Use
  Company Number: US-PFIZER INC-2014006333

PATIENT
  Age: 62 Year
  Sex: Male

DRUGS (5)
  1. SERTRALINE HCL [Suspect]
     Dosage: UNK
  2. COCAINE [Suspect]
     Dosage: UNK
  3. PHENCYCLIDINE [Suspect]
     Dosage: UNK
  4. TRAMADOL [Suspect]
     Dosage: UNK
  5. ZOLPIDEM [Suspect]
     Dosage: UNK

REACTIONS (1)
  - Drug abuse [Fatal]
